FAERS Safety Report 7627172-X (Version None)
Quarter: 2011Q3

REPORT INFORMATION
  Report Type: 
  Country: None (occurrence: None)
  Receive Date: 20110721
  Receipt Date: 20110513
  Transmission Date: 20111222
  Serious: No
  Sender: FDA-Public Use
  Company Number: US-BAYER-2011-043280

PATIENT
  Age: 32 Year
  Sex: Female
  Weight: 170 kg

DRUGS (6)
  1. TRAZODONE HCL [Concomitant]
  2. ALEVE (CAPLET) [Suspect]
     Indication: NECK PAIN
  3. ALEVE (CAPLET) [Suspect]
     Indication: PAIN
     Dosage: 11 DF, UNK
     Route: 048
  4. ALEVE (CAPLET) [Suspect]
     Indication: PAIN IN JAW
  5. CITALOPRAM [Concomitant]
  6. ALEVE (CAPLET) [Suspect]
     Indication: HEADACHE

REACTIONS (3)
  - DIZZINESS [None]
  - ASTHENIA [None]
  - NO ADVERSE EVENT [None]
